FAERS Safety Report 5320021-4 (Version None)
Quarter: 2007Q2

REPORT INFORMATION
  Report Type: 
  Country: None (occurrence: None)
  Receive Date: 20070509
  Receipt Date: 20070502
  Transmission Date: 20071010
  Serious: Yes (Other)
  Sender: FDA-Public Use
  Company Number: US-ASTRAZENECA-2007UW09676

PATIENT
  Age: 634 Month
  Sex: Female

DRUGS (1)
  1. SEROQUEL [Suspect]
     Indication: BIPOLAR DISORDER
     Dosage: 75-200MG
     Route: 048
     Dates: start: 20050328, end: 20051201

REACTIONS (1)
  - NEUROPATHY [None]
